FAERS Safety Report 12929294 (Version 1)
Quarter: 2016Q4

REPORT INFORMATION
  Report Type: Spontaneous
  Country: US (occurrence: US)
  Receive Date: 20161110
  Receipt Date: 20161110
  Transmission Date: 20170207
  Serious: No
  Sender: FDA-Public Use
  Company Number: US-PFIZER INC-2016524383

PATIENT
  Age: 51 Year
  Sex: Female

DRUGS (5)
  1. VITAMIN B12 [Concomitant]
     Active Substance: CYANOCOBALAMIN
  2. CYTOMEL [Suspect]
     Active Substance: LIOTHYRONINE SODIUM
     Indication: AUTOIMMUNE THYROIDITIS
     Dosage: 50 UG, 3X/DAY
     Route: 048
     Dates: start: 200606, end: 20161107
  3. VITAMIN D [Concomitant]
     Active Substance: CHOLECALCIFEROL
  4. ASPIRIN. [Concomitant]
     Active Substance: ASPIRIN
  5. SYNTHROID [Concomitant]
     Active Substance: LEVOTHYROXINE SODIUM
     Indication: AUTOIMMUNE THYROIDITIS

REACTIONS (6)
  - Rash [Unknown]
  - Weight increased [Unknown]
  - Inflammation [Unknown]
  - Product quality issue [Unknown]
  - Abdominal distension [Unknown]
  - Neutrophilia [Unknown]
